FAERS Safety Report 7298869-9 (Version None)
Quarter: 2011Q1

REPORT INFORMATION
  Report Type: 
  Country: None (occurrence: None)
  Receive Date: 20110217
  Receipt Date: 20110207
  Transmission Date: 20110831
  Serious: Yes (Hospitalization)
  Sender: FDA-Public Use
  Company Number: CO-ROCHE-758206

PATIENT
  Sex: Female

DRUGS (4)
  1. CIPROFLOXACIN [Concomitant]
     Indication: SKIN INFECTION
     Route: 048
     Dates: start: 20100124
  2. TRASTUZUMAB [Suspect]
     Indication: BREAST CANCER
     Route: 042
     Dates: start: 20100525
  3. CLINDAMYCIN [Concomitant]
     Indication: SKIN INFECTION
     Route: 048
     Dates: start: 20100124
  4. INSULIN [Concomitant]
     Dosage: FREQUENCY: PRN.
     Route: 058

REACTIONS (1)
  - SUBCUTANEOUS ABSCESS [None]
